FAERS Safety Report 6139571-6 (Version None)
Quarter: 2009Q2

REPORT INFORMATION
  Report Type: 
  Country: None (occurrence: None)
  Receive Date: 20090401
  Receipt Date: 20090319
  Transmission Date: 20091009
  Serious: Yes (Other)
  Sender: FDA-Public Use
  Company Number: JP-NOVOPROD-285640

PATIENT
  Age: 32 Year
  Sex: Female
  Weight: 62 kg

DRUGS (17)
  1. LEVEMIR [Suspect]
     Indication: TYPE 1 DIABETES MELLITUS
     Dosage: 17 IU, QD
     Route: 058
     Dates: start: 20080301, end: 20090101
  2. CIPROXAN                           /00697202/ [Suspect]
     Indication: NAUSEA
  3. CIPROXAN                           /00697202/ [Suspect]
     Indication: PYREXIA
  4. CIPROXAN                           /00697202/ [Suspect]
     Indication: HEADACHE
  5. LOXONIN                            /00890701/ [Suspect]
     Indication: NAUSEA
  6. LOXONIN                            /00890701/ [Suspect]
     Indication: PYREXIA
  7. LOXONIN                            /00890701/ [Suspect]
     Indication: HEADACHE
  8. NOVORAPID CHU FLEXPEN [Concomitant]
     Indication: TYPE 1 DIABETES MELLITUS
     Dosage: 15 IU, QD
     Route: 058
  9. PRIMPERAN                          /00041901/ [Concomitant]
     Indication: NAUSEA
  10. PRIMPERAN                          /00041901/ [Concomitant]
     Indication: PYREXIA
  11. PRIMPERAN                          /00041901/ [Concomitant]
     Indication: HEADACHE
  12. MUCOSTA [Concomitant]
     Indication: NAUSEA
  13. MUCOSTA [Concomitant]
     Indication: PYREXIA
  14. MUCOSTA [Concomitant]
     Indication: HEADACHE
  15. BIOFERMIN [Concomitant]
     Indication: NAUSEA
  16. BIOFERMIN [Concomitant]
     Indication: PYREXIA
  17. BIOFERMIN [Concomitant]
     Indication: HEADACHE

REACTIONS (4)
  - HEADACHE [None]
  - NAUSEA [None]
  - PYREXIA [None]
  - RENAL DISORDER [None]
